FAERS Safety Report 25032297 (Version 1)
Quarter: 2025Q1

REPORT INFORMATION
  Report Type: Spontaneous
  Country: US (occurrence: None)
  Receive Date: 20250303
  Receipt Date: 20250303
  Transmission Date: 20250408
  Serious: Yes (Other)
  Sender: FDA-CTU
  Company Number: None

PATIENT
  Age: 5 Year
  Sex: Male
  Weight: 20.7 kg

DRUGS (1)
  1. MIRALAX [Suspect]
     Active Substance: POLYETHYLENE GLYCOL 3350
     Indication: Constipation
     Route: 048

REACTIONS (15)
  - Anger [None]
  - Abnormal behaviour [None]
  - Nervousness [None]
  - Dysarthria [None]
  - Dysphemia [None]
  - Cough [None]
  - Educational problem [None]
  - Anger [None]
  - Weight decreased [None]
  - Fear [None]
  - Insomnia [None]
  - Anal incontinence [None]
  - Urinary incontinence [None]
  - Attention deficit hyperactivity disorder [None]
  - Autism spectrum disorder [None]

NARRATIVE: CASE EVENT DATE: 20250219
